FAERS Safety Report 15076500 (Version 7)
Quarter: 2020Q4

REPORT INFORMATION
  Report Type: Report from Study
  Country: US (occurrence: US)
  Receive Date: 20180627
  Receipt Date: 20201020
  Transmission Date: 20210113
  Serious: Yes (Other)
  Sender: FDA-Public Use
  Company Number: US-JNJFOC-20180400161

PATIENT
  Age: 65 Year
  Sex: Male
  Weight: 119 kg

DRUGS (67)
  1. IMBRUVICA [Suspect]
     Active Substance: IBRUTINIB
     Route: 048
     Dates: start: 20180208, end: 20180504
  2. XARELTO [Suspect]
     Active Substance: RIVAROXABAN
     Indication: ATRIAL FIBRILLATION
     Dosage: FILM-COATED TABLET
     Route: 048
     Dates: start: 2008
  3. VALACYCLOVIR HCL [Concomitant]
     Active Substance: VALACYCLOVIR HYDROCHLORIDE
     Route: 048
     Dates: start: 20180524
  4. AMLODIPINE BESYLATE. [Concomitant]
     Active Substance: AMLODIPINE BESYLATE
     Dosage: TAKING HALF A PILL NOW
     Route: 048
     Dates: start: 20180510
  5. FUROSEMIDE. [Concomitant]
     Active Substance: FUROSEMIDE
     Dosage: 20 MG, AS DIRECTED
     Route: 048
     Dates: start: 20180510
  6. FUROSEMIDE. [Concomitant]
     Active Substance: FUROSEMIDE
     Dosage: 20 MG, AS DIRECTED
     Route: 048
     Dates: start: 20180524
  7. PERCOCET [Concomitant]
     Active Substance: ACETAMINOPHEN\OXYCODONE HYDROCHLORIDE
     Indication: PAIN
     Dosage: 1 TABLET Q4-6H PRN
     Route: 048
     Dates: start: 20180503
  8. PERCOCET [Concomitant]
     Active Substance: ACETAMINOPHEN\OXYCODONE HYDROCHLORIDE
     Dosage: 1 TABLET Q4-6H PRN
     Route: 048
     Dates: start: 20180510
  9. FENTANYL. [Concomitant]
     Active Substance: FENTANYL
     Dosage: 1 PATCH TOPICAL Q72H
     Route: 062
     Dates: start: 20180607
  10. IMBRUVICA [Suspect]
     Active Substance: IBRUTINIB
     Route: 048
     Dates: start: 20180518
  11. FUROSEMIDE. [Concomitant]
     Active Substance: FUROSEMIDE
     Dosage: 20 MG, AS DIRECTED
     Route: 048
     Dates: start: 20180531
  12. LIPITOR [Concomitant]
     Active Substance: ATORVASTATIN CALCIUM
     Route: 048
     Dates: start: 20180607
  13. PERCOCET [Concomitant]
     Active Substance: ACETAMINOPHEN\OXYCODONE HYDROCHLORIDE
     Dosage: 1 TABLET Q4-6H PRN
     Route: 048
     Dates: start: 20180524
  14. LISINOPRIL. [Concomitant]
     Active Substance: LISINOPRIL
     Dosage: 20 MG, AS DIRECTED
     Route: 048
     Dates: start: 20180503
  15. LISINOPRIL. [Concomitant]
     Active Substance: LISINOPRIL
     Route: 048
     Dates: start: 20180510
  16. FENTANYL. [Concomitant]
     Active Substance: FENTANYL
     Dosage: 1 PATCH TOPICAL Q72H
     Route: 062
     Dates: start: 20180517
  17. IMBRUVICA [Suspect]
     Active Substance: IBRUTINIB
     Route: 065
     Dates: start: 201802, end: 201805
  18. IMBRUVICA [Suspect]
     Active Substance: IBRUTINIB
     Dosage: 140 MG, QD
     Route: 048
     Dates: start: 20180209
  19. OXYBUTYNIN CHLORIDE. [Concomitant]
     Active Substance: OXYBUTYNIN CHLORIDE
     Route: 048
     Dates: start: 20180510
  20. OXYBUTYNIN CHLORIDE. [Concomitant]
     Active Substance: OXYBUTYNIN CHLORIDE
     Route: 048
     Dates: start: 20180531
  21. CHLORAMBUCIL [Concomitant]
     Active Substance: CHLORAMBUCIL
     Dosage: TAKE 8 TABLETS DAY 1 AND DAY 15
     Route: 048
     Dates: start: 20180531
  22. LIPITOR [Concomitant]
     Active Substance: ATORVASTATIN CALCIUM
     Route: 048
     Dates: start: 20180503
  23. XARELTO [Suspect]
     Active Substance: RIVAROXABAN
     Dosage: FILM-COATED TABLET
     Route: 048
     Dates: start: 20180503
  24. XARELTO [Suspect]
     Active Substance: RIVAROXABAN
     Dosage: FILM-COATED TABLET
     Route: 048
     Dates: start: 20180607
  25. XARELTO [Suspect]
     Active Substance: RIVAROXABAN
     Dosage: FILM-COATED TABLET
     Route: 048
     Dates: start: 2018
  26. VALACYCLOVIR HCL [Concomitant]
     Active Substance: VALACYCLOVIR HYDROCHLORIDE
     Route: 048
     Dates: start: 20140721, end: 20180503
  27. LIPITOR [Concomitant]
     Active Substance: ATORVASTATIN CALCIUM
     Route: 048
     Dates: start: 20180517
  28. LIPITOR [Concomitant]
     Active Substance: ATORVASTATIN CALCIUM
     Route: 048
     Dates: start: 20180531
  29. LISINOPRIL. [Concomitant]
     Active Substance: LISINOPRIL
     Route: 048
     Dates: start: 20180517
  30. LISINOPRIL. [Concomitant]
     Active Substance: LISINOPRIL
     Route: 048
     Dates: start: 20180607
  31. FENTANYL. [Concomitant]
     Active Substance: FENTANYL
     Dosage: 1 PATCH TOPICAL Q72H
     Route: 062
     Dates: start: 20180524
  32. IMBRUVICA [Suspect]
     Active Substance: IBRUTINIB
     Indication: CHRONIC LYMPHOCYTIC LEUKAEMIA
     Dosage: 420 MG, QD
     Route: 048
  33. IMBRUVICA [Suspect]
     Active Substance: IBRUTINIB
     Dosage: 420 MG, QD
     Route: 048
     Dates: start: 20180211, end: 20180522
  34. XARELTO [Suspect]
     Active Substance: RIVAROXABAN
     Dosage: FILM-COATED TABLET
     Route: 048
     Dates: start: 20180524
  35. VALACYCLOVIR HCL [Concomitant]
     Active Substance: VALACYCLOVIR HYDROCHLORIDE
     Route: 048
     Dates: start: 20180607
  36. AMLODIPINE BESYLATE. [Concomitant]
     Active Substance: AMLODIPINE BESYLATE
     Dosage: TAKING HALF A PILL NOW
     Route: 048
     Dates: start: 20180517
  37. AMLODIPINE BESYLATE. [Concomitant]
     Active Substance: AMLODIPINE BESYLATE
     Dosage: TAKING HALF A PILL NOW
     Route: 048
     Dates: start: 20180524
  38. OXYBUTYNIN CHLORIDE. [Concomitant]
     Active Substance: OXYBUTYNIN CHLORIDE
     Route: 048
     Dates: start: 20180503
  39. CHLORAMBUCIL [Concomitant]
     Active Substance: CHLORAMBUCIL
     Indication: LEUKAEMIA
     Dosage: TAKE 8 TABLETS DAY 1 AND DAY 15
     Route: 048
     Dates: start: 20180503
  40. PERCOCET [Concomitant]
     Active Substance: ACETAMINOPHEN\OXYCODONE HYDROCHLORIDE
     Dosage: 1 TABLET Q4-6H PRN
     Route: 048
     Dates: start: 20180531
  41. LISINOPRIL. [Concomitant]
     Active Substance: LISINOPRIL
     Route: 048
     Dates: start: 20180524
  42. FENTANYL. [Concomitant]
     Active Substance: FENTANYL
     Dosage: 1 PATCH TOPICAL Q72H
     Route: 062
     Dates: start: 20180510
  43. XARELTO [Suspect]
     Active Substance: RIVAROXABAN
     Dosage: FILM-COATED TABLET
     Route: 048
     Dates: start: 20180510
  44. XARELTO [Suspect]
     Active Substance: RIVAROXABAN
     Dosage: FILM-COATED TABLET
     Route: 048
     Dates: start: 20180531
  45. VALACYCLOVIR HCL [Concomitant]
     Active Substance: VALACYCLOVIR HYDROCHLORIDE
     Route: 048
     Dates: start: 20180517
  46. AMLODIPINE BESYLATE. [Concomitant]
     Active Substance: AMLODIPINE BESYLATE
     Route: 048
     Dates: start: 20180607
  47. OXYBUTYNIN CHLORIDE. [Concomitant]
     Active Substance: OXYBUTYNIN CHLORIDE
     Route: 048
     Dates: start: 20180524
  48. FUROSEMIDE. [Concomitant]
     Active Substance: FUROSEMIDE
     Dosage: 20 MG, AS DIRECTED
     Route: 048
     Dates: start: 20180503
  49. CHLORAMBUCIL [Concomitant]
     Active Substance: CHLORAMBUCIL
     Dosage: TAKE 8 TABLETS DAY 1 AND DAY 15
     Route: 048
     Dates: start: 20180517
  50. CHLORAMBUCIL [Concomitant]
     Active Substance: CHLORAMBUCIL
     Dosage: TAKE 8 TABLETS DAY 1 AND DAY 15
     Route: 048
     Dates: start: 20180524
  51. CHLORAMBUCIL [Concomitant]
     Active Substance: CHLORAMBUCIL
     Dosage: TAKE 8 TABLETS DAY 1 AND DAY 15
     Route: 048
     Dates: start: 20180607
  52. LIPITOR [Concomitant]
     Active Substance: ATORVASTATIN CALCIUM
     Route: 048
     Dates: start: 20180510
  53. LIPITOR [Concomitant]
     Active Substance: ATORVASTATIN CALCIUM
     Route: 048
     Dates: start: 20180524
  54. PERCOCET [Concomitant]
     Active Substance: ACETAMINOPHEN\OXYCODONE HYDROCHLORIDE
     Dosage: 1 TABLET Q4-6H PRN
     Route: 048
     Dates: start: 20180607
  55. LISINOPRIL. [Concomitant]
     Active Substance: LISINOPRIL
     Route: 048
     Dates: start: 20180531
  56. FENTANYL. [Concomitant]
     Active Substance: FENTANYL
     Dosage: 1 PATCH TOPICAL Q72H
     Route: 062
     Dates: start: 20180503
  57. AMLODIPINE BESYLATE. [Concomitant]
     Active Substance: AMLODIPINE BESYLATE
     Dosage: TAKING HALF A PILL NOW
     Route: 048
     Dates: start: 20180503
  58. OXYBUTYNIN CHLORIDE. [Concomitant]
     Active Substance: OXYBUTYNIN CHLORIDE
     Route: 048
     Dates: start: 20180517
  59. CHLORAMBUCIL [Concomitant]
     Active Substance: CHLORAMBUCIL
     Dosage: TAKE 8 TABLETS DAY 1 AND DAY 15
     Route: 048
     Dates: start: 20180510
  60. FENTANYL. [Concomitant]
     Active Substance: FENTANYL
     Dosage: 1 PATCH TOPICAL Q72H
     Route: 062
     Dates: start: 20180531
  61. XARELTO [Suspect]
     Active Substance: RIVAROXABAN
     Dosage: FILM-COATED TABLET
     Route: 048
     Dates: start: 20180517
  62. VALACYCLOVIR HCL [Concomitant]
     Active Substance: VALACYCLOVIR HYDROCHLORIDE
     Route: 048
     Dates: start: 20180510
  63. AMLODIPINE BESYLATE. [Concomitant]
     Active Substance: AMLODIPINE BESYLATE
     Dosage: TAKING HALF A PILL NOW
     Route: 048
     Dates: start: 20180531
  64. OXYBUTYNIN CHLORIDE. [Concomitant]
     Active Substance: OXYBUTYNIN CHLORIDE
     Route: 048
     Dates: start: 20180607
  65. FUROSEMIDE. [Concomitant]
     Active Substance: FUROSEMIDE
     Dosage: 20 MG, AS DIRECTED
     Route: 048
     Dates: start: 20180517
  66. FUROSEMIDE. [Concomitant]
     Active Substance: FUROSEMIDE
     Dosage: 20 MG, AS DIRECTED
     Route: 048
     Dates: start: 20180607
  67. PERCOCET [Concomitant]
     Active Substance: ACETAMINOPHEN\OXYCODONE HYDROCHLORIDE
     Dosage: 1 TABLET Q4-6H PRN
     Route: 048
     Dates: start: 20180517

REACTIONS (16)
  - Endovenous ablation [Unknown]
  - Cystitis haemorrhagic [Unknown]
  - Skin fissures [Recovering/Resolving]
  - Blood potassium decreased [Unknown]
  - Epistaxis [Recovered/Resolved]
  - Fatigue [Unknown]
  - Peripheral swelling [Recovering/Resolving]
  - Incorrect dose administered [Unknown]
  - Dyspnoea exertional [Not Recovered/Not Resolved]
  - Dry skin [Recovering/Resolving]
  - Abdominal distension [Not Recovered/Not Resolved]
  - Off label use [Unknown]
  - Hernia [Recovered/Resolved]
  - Blood glucose increased [Unknown]
  - Oral herpes [Recovered/Resolved]
  - Joint swelling [Not Recovered/Not Resolved]

NARRATIVE: CASE EVENT DATE: 20180209
